FAERS Safety Report 9850901 (Version 1)
Quarter: 2014Q1

REPORT INFORMATION
  Report Type: Spontaneous
  Country: FR (occurrence: FR)
  Receive Date: 20140128
  Receipt Date: 20140128
  Transmission Date: 20141002
  Serious: Yes (Hospitalization, Other)
  Sender: FDA-Public Use
  Company Number: FR-WATSON-2014-00667

PATIENT
  Age: 30 Year
  Sex: Female

DRUGS (3)
  1. METHYLPREDNISOLONE (UNKNOWN) [Suspect]
     Indication: MULTIPLE SCLEROSIS
     Dosage: UNK, BOLUS
     Route: 042
     Dates: start: 20080208
  2. METHYLPREDNISOLONE (UNKNOWN) [Suspect]
     Dosage: UNK, BOLUS
     Route: 042
     Dates: start: 20050830
  3. METHYLPREDNISOLONE (UNKNOWN) [Suspect]
     Dosage: UNK, BOLUS
     Route: 042
     Dates: start: 20030908

REACTIONS (2)
  - Hepatitis [Recovered/Resolved]
  - Hepatic failure [Recovered/Resolved]
